FAERS Safety Report 5015293-X (Version None)
Quarter: 2006Q2

REPORT INFORMATION
  Report Type: 
  Country: None (occurrence: None)
  Receive Date: 20060530
  Receipt Date: 20060530
  Transmission Date: 20061013
  Serious: Yes (Hospitalization)
  Sender: FDA-Public Use
  Company Number: None

PATIENT
  Age: 52 Year
  Sex: Male
  Weight: 148.3262 kg

DRUGS (7)
  1. CISPLATIN [Suspect]
     Indication: TONGUE NEOPLASM MALIGNANT STAGE UNSPECIFIED
  2. ERLOTINIB   100MG  PO QD - LAST DOSE 3/19/06 [Suspect]
  3. PROTONIX [Concomitant]
  4. OXYCONTIN [Concomitant]
  5. OXCYCODONE [Concomitant]
  6. MIRALAX [Concomitant]
  7. XOFRAN [Concomitant]

REACTIONS (4)
  - FACE OEDEMA [None]
  - PETECHIAE [None]
  - URTICARIA [None]
  - VASCULITIC RASH [None]
